FAERS Safety Report 6988135-0 (Version None)
Quarter: 2010Q3

REPORT INFORMATION
  Report Type: 
  Country: None (occurrence: None)
  Receive Date: 20100916
  Receipt Date: 20100913
  Transmission Date: 20110219
  Serious: Yes (Hospitalization)
  Sender: FDA-Public Use
  Company Number: Z0004969B

PATIENT
  Sex: Female
  Weight: 118.5 kg

DRUGS (2)
  1. TOPOTECAN [Suspect]
     Indication: NEOPLASM
     Dosage: 10MG CYCLIC
     Route: 048
     Dates: start: 20100630
  2. PAZOPANIB [Suspect]
     Indication: NEOPLASM
     Dosage: 800MG PER DAY
     Route: 048
     Dates: start: 20100616

REACTIONS (3)
  - ANAEMIA [None]
  - FATIGUE [None]
  - PYREXIA [None]
